FAERS Safety Report 11920523 (Version 8)
Quarter: 2017Q4

REPORT INFORMATION
  Report Type: Report from Study
  Country: JP (occurrence: JP)
  Receive Date: 20160115
  Receipt Date: 20171116
  Transmission Date: 20180320
  Serious: Yes (Hospitalization)
  Sender: FDA-Public Use
  Company Number: JP-ROCHE-1689012

PATIENT
  Age: 40 Year
  Sex: Female
  Weight: 44.8 kg

DRUGS (32)
  1. EPIRUBICIN [Suspect]
     Active Substance: EPIRUBICIN
     Indication: HER-2 POSITIVE BREAST CANCER
     Dosage: 4 CYCLES ADMINISTERED
     Route: 065
     Dates: start: 20140604, end: 20140806
  2. WYPAX [Concomitant]
     Active Substance: LORAZEPAM
     Indication: NAUSEA
     Route: 065
     Dates: start: 20140604, end: 20151002
  3. FESIN (JAPAN) [Concomitant]
     Active Substance: IRON SUCROSE
     Indication: ANAEMIA
     Route: 065
     Dates: start: 20150924, end: 20150924
  4. CLARITHROMYCIN. [Concomitant]
     Active Substance: CLARITHROMYCIN
     Indication: GASTROINTESTINAL ULCER
     Route: 065
     Dates: start: 20160130, end: 20160204
  5. PERTUZUMAB. [Suspect]
     Active Substance: PERTUZUMAB
     Indication: HER-2 POSITIVE BREAST CANCER
     Dosage: LOADING DOSE
     Route: 042
     Dates: start: 20140903
  6. CYCLOPHOSPHAMIDE. [Suspect]
     Active Substance: CYCLOPHOSPHAMIDE
     Indication: HER-2 POSITIVE BREAST CANCER
     Dosage: 4 CYCLES ADMINISTERED
     Route: 065
     Dates: start: 20140604, end: 20140806
  7. LANSOPRAZOLE. [Concomitant]
     Active Substance: LANSOPRAZOLE
     Indication: ABDOMINAL PAIN UPPER
     Route: 065
     Dates: start: 20150218, end: 20151023
  8. LOCOID [Concomitant]
     Active Substance: HYDROCORTISONE BUTYRATE
     Indication: RASH
     Route: 065
     Dates: start: 20150902, end: 20151106
  9. ISOSORBIDE MONONITRATE. [Concomitant]
     Active Substance: ISOSORBIDE MONONITRATE
     Indication: VARICES OESOPHAGEAL
     Route: 065
     Dates: start: 20160223
  10. BIO-THREE [Concomitant]
     Active Substance: HERBALS
     Indication: GASTROINTESTINAL ULCER
     Route: 065
     Dates: start: 20160130, end: 20160204
  11. TRASTUZUMAB EMTANSINE [Suspect]
     Active Substance: ADO-TRASTUZUMAB EMTANSINE
     Indication: HER-2 POSITIVE BREAST CANCER
     Dosage: DOSE AND FREQUENCY AS PER PROTOCOL?18 CYCLES ADMINISTERED TILL 02/OCT/2015?MOST RECENT DOSE ON 02/OC
     Route: 042
     Dates: start: 20140903
  12. PAVULON [Concomitant]
     Active Substance: PANCURONIUM BROMIDE
     Indication: UPPER RESPIRATORY TRACT INFECTION
     Route: 065
     Dates: start: 20150331, end: 20150628
  13. KEFRAL [Concomitant]
     Active Substance: CEFACLOR
     Route: 065
     Dates: start: 20151027, end: 20151102
  14. RIZABEN [Concomitant]
     Active Substance: TRANILAST
     Route: 065
     Dates: start: 20151027, end: 20151102
  15. RULID [Concomitant]
     Active Substance: ROXITHROMYCIN
     Indication: RASH
     Route: 065
     Dates: start: 20150507, end: 20150529
  16. ACUATIM [Concomitant]
     Active Substance: NADIFLOXACIN
     Indication: RASH
     Route: 065
     Dates: start: 20150507, end: 20150901
  17. BIOFERMIN R [Concomitant]
     Active Substance: BACILLUS SUBTILIS\LACTOBACILLUS ACIDOPHILUS\STREPTOCOCCUS FAECAIS
     Indication: PROPHYLAXIS
     Route: 065
     Dates: start: 20150515, end: 20150518
  18. BUSCOPAN [Concomitant]
     Active Substance: BUTYLSCOPOLAMINE BROMIDE
     Indication: ABDOMINAL PAIN UPPER
     Route: 065
     Dates: start: 20151024, end: 20151028
  19. PRIMPERAN [Concomitant]
     Active Substance: METOCLOPRAMIDE HYDROCHLORIDE
     Indication: NAUSEA
     Route: 065
     Dates: start: 20140604, end: 20151002
  20. KYTRIL [Concomitant]
     Active Substance: GRANISETRON HYDROCHLORIDE
     Indication: NAUSEA
     Route: 065
     Dates: start: 20150721, end: 20150810
  21. OHTA^S ISAN [Concomitant]
     Indication: ABDOMINAL PAIN UPPER
     Route: 065
     Dates: start: 20151029, end: 20151106
  22. METHADERM [Concomitant]
     Indication: RASH
     Route: 065
     Dates: start: 20150902, end: 20151106
  23. VOLTAREN [Concomitant]
     Active Substance: DICLOFENAC SODIUM
     Route: 065
     Dates: start: 20151027, end: 20151102
  24. PERTUZUMAB. [Suspect]
     Active Substance: PERTUZUMAB
     Dosage: MAINTAINENCE DOSE?DOSE AS PER PROTOCOL?18 CYCLES ADMINISTERED TILL 02/OCT/2015?MOST RECENT DOSE ON 0
     Route: 042
     Dates: start: 20140924
  25. CEFCAPENE PIVOXIL [Concomitant]
     Active Substance: CEFCAPENE PIVOXIL
     Indication: UPPER RESPIRATORY TRACT INFECTION
     Route: 065
     Dates: start: 20150515, end: 20150518
  26. PASETOCIN [Concomitant]
     Active Substance: AMOXICILLIN
     Indication: GASTROINTESTINAL ULCER
     Route: 065
     Dates: start: 20160130, end: 20160204
  27. FEROTYM [Concomitant]
     Active Substance: FERROUS CITRATE\SODIUM
     Indication: ANAEMIA
     Route: 065
     Dates: start: 20141207, end: 20150529
  28. MYSER (JAPAN) [Concomitant]
     Indication: RASH
     Route: 065
     Dates: start: 20150330, end: 20150607
  29. MAGMITT [Concomitant]
     Active Substance: MAGNESIUM OXIDE
     Indication: CONSTIPATION
     Route: 065
     Dates: start: 20150413, end: 20150506
  30. BESOFTEN [Concomitant]
     Active Substance: PENTOSAN POLYSULFATE SODIUM
     Indication: RASH
     Route: 065
     Dates: start: 20150413, end: 20150901
  31. FERROMIA [Concomitant]
     Active Substance: SODIUM FERROUS CITRATE
     Indication: ANAEMIA
     Route: 065
     Dates: start: 20150924, end: 20151001
  32. TAKECAB [Concomitant]
     Active Substance: VONOPRAZAN FUMURATE
     Indication: GASTROINTESTINAL ULCER
     Route: 065
     Dates: start: 20160130, end: 20160204

REACTIONS (1)
  - Nodular regenerative hyperplasia [Not Recovered/Not Resolved]

NARRATIVE: CASE EVENT DATE: 20160104
